FAERS Safety Report 22163837 (Version 1)
Quarter: 2023Q2

REPORT INFORMATION
  Report Type: Spontaneous
  Country: SA (occurrence: SA)
  Receive Date: 20230401
  Receipt Date: 20230401
  Transmission Date: 20230722
  Serious: Yes (Other)
  Sender: FDA-Public Use
  Company Number: SA-002147023-NVSC2023SA073834

PATIENT
  Age: 54 Year
  Sex: Female

DRUGS (1)
  1. METOPROLOL [Suspect]
     Active Substance: METOPROLOL
     Indication: Asthma
     Dosage: UNK (FOR MORE THAN 3 MONTHS)
     Route: 065

REACTIONS (3)
  - Asthma [Unknown]
  - Medication error [Unknown]
  - Product use in unapproved indication [Unknown]
